FAERS Safety Report 18720977 (Version 6)
Quarter: 2021Q2

REPORT INFORMATION
  Report Type: Report from Study
  Country: ES (occurrence: ES)
  Receive Date: 20210108
  Receipt Date: 20210507
  Transmission Date: 20210717
  Serious: Yes (Other)
  Sender: FDA-Public Use
  Company Number: ES-GILEAD-2021-0511655

PATIENT
  Age: 84 Year
  Sex: Female
  Weight: 52 kg

DRUGS (27)
  1. ENOXAPARIN [Concomitant]
     Active Substance: ENOXAPARIN
     Indication: PROPHYLAXIS
     Dosage: 40 MG, QD
     Dates: start: 20201215, end: 20210103
  2. OXYGEN. [Concomitant]
     Active Substance: OXYGEN
     Dosage: 10 L/MIN
     Route: 055
     Dates: start: 20201211
  3. PARACETAMOL [Concomitant]
     Active Substance: ACETAMINOPHEN
     Indication: COVID-19
     Dosage: UNK
  4. PREDNISONE. [Concomitant]
     Active Substance: PREDNISONE
     Indication: COVID-19
  5. OXYGEN. [Concomitant]
     Active Substance: OXYGEN
     Dosage: 8 L/MIN
     Route: 055
     Dates: start: 20201216
  6. LOSARTAN. [Concomitant]
     Active Substance: LOSARTAN
     Indication: HYPERTENSION
  7. OXYGEN. [Concomitant]
     Active Substance: OXYGEN
     Dosage: 10 L/MIN
     Route: 055
     Dates: start: 20201213
  8. OXYGEN. [Concomitant]
     Active Substance: OXYGEN
     Dosage: 2 L/MIN
     Route: 055
     Dates: start: 20201222
  9. REMDESIVIR. [Suspect]
     Active Substance: REMDESIVIR
     Indication: COVID-19 PNEUMONIA
     Dosage: SEE NARRATIVE
     Route: 042
     Dates: start: 20201211, end: 20201219
  10. TOCILIZUMAB. [Suspect]
     Active Substance: TOCILIZUMAB
     Indication: COVID-19 PNEUMONIA
     Dosage: 8 MG/KG MOST RECEN DOSE OF STUDY DRUG PRIOR TO AE:
     Route: 042
     Dates: start: 20201211
  11. OXYGEN. [Concomitant]
     Active Substance: OXYGEN
     Dosage: UNK
     Dates: start: 20201212
  12. OXYGEN. [Concomitant]
     Active Substance: OXYGEN
     Dosage: 10 L/MIN
     Route: 055
     Dates: start: 20201212
  13. OXYGEN. [Concomitant]
     Active Substance: OXYGEN
     Dosage: 10 L/MIN
     Route: 055
     Dates: start: 20201214
  14. OXYGEN. [Concomitant]
     Active Substance: OXYGEN
     Dosage: 4 L/MIN
     Route: 055
     Dates: start: 20201219
  15. OXYGEN. [Concomitant]
     Active Substance: OXYGEN
     Dosage: 10 L/MIN
     Route: 055
     Dates: start: 20201213
  16. OXYGEN. [Concomitant]
     Active Substance: OXYGEN
     Dosage: 3 L/MIN
     Route: 055
     Dates: start: 20201219
  17. OXYGEN. [Concomitant]
     Active Substance: OXYGEN
     Dosage: 8 L/MIN
     Route: 055
     Dates: start: 20201217
  18. INSULIN [Concomitant]
     Active Substance: INSULIN NOS
     Indication: STEROID DIABETES
     Dosage: UNK
     Dates: start: 20201210, end: 20201224
  19. METHYLPREDNISOLONE. [Concomitant]
     Active Substance: METHYLPREDNISOLONE
     Indication: COVID-19
     Dosage: UNK
     Dates: start: 20201209, end: 20201221
  20. OXYGEN. [Concomitant]
     Active Substance: OXYGEN
     Dosage: 8 L/MIN
     Route: 055
     Dates: start: 20201215
  21. OXYGEN. [Concomitant]
     Active Substance: OXYGEN
     Dosage: 2 L/MIN
     Route: 055
     Dates: start: 20201221
  22. OXYGEN. [Concomitant]
     Active Substance: OXYGEN
     Dosage: 4 L/MIN
     Route: 055
     Dates: start: 20201217
  23. OXYGEN. [Concomitant]
     Active Substance: OXYGEN
     Dosage: 10 L/MIN
     Route: 055
     Dates: start: 20201212
  24. OXYGEN. [Concomitant]
     Active Substance: OXYGEN
     Dosage: 4 L/MIN
     Route: 055
     Dates: start: 20001218
  25. OXYGEN. [Concomitant]
     Active Substance: OXYGEN
     Dosage: 8 L/MIN
     Route: 055
     Dates: start: 20201211
  26. OMEPRAZOLE. [Concomitant]
     Active Substance: OMEPRAZOLE
     Indication: PROPHYLAXIS
     Dosage: UNK
     Dates: start: 20201209, end: 20201223
  27. OXYGEN. [Concomitant]
     Active Substance: OXYGEN
     Dosage: 2 L/MIN
     Route: 055
     Dates: start: 20201220

REACTIONS (1)
  - Hepatitis toxic [Recovered/Resolved]

NARRATIVE: CASE EVENT DATE: 20201220
